FAERS Safety Report 7244560-4 (Version None)
Quarter: 2011Q1

REPORT INFORMATION
  Report Type: 
  Country: None (occurrence: None)
  Receive Date: 20110125
  Receipt Date: 20110117
  Transmission Date: 20110831
  Serious: Yes (Other)
  Sender: FDA-Public Use
  Company Number: US-US-EMD SERONO, INC.-7020443

PATIENT
  Sex: Female
  Weight: 91 kg

DRUGS (8)
  1. UNSPECIFIED MEDICATION [Concomitant]
  2. PLAQUENIL [Concomitant]
     Indication: ARTHRALGIA
  3. OXYCONTIN [Concomitant]
     Indication: ARTHRALGIA
  4. PLAQUENIL [Concomitant]
     Indication: SYSTEMIC LUPUS ERYTHEMATOSUS
  5. REBIF [Suspect]
     Indication: MULTIPLE SCLEROSIS
     Route: 058
     Dates: start: 20060101, end: 20081101
  6. REBIF [Suspect]
     Route: 058
     Dates: start: 20101001
  7. MULTIPLE PAIN MEDICATIONS [Concomitant]
     Indication: ARTHRALGIA
  8. HYDROCHLOROTHIAZIDE [Concomitant]
     Indication: FLUID RETENTION
     Dates: start: 20090101

REACTIONS (10)
  - INJECTION SITE ERYTHEMA [None]
  - MALIGNANT MELANOMA [None]
  - SYSTEMIC LUPUS ERYTHEMATOSUS [None]
  - COELIAC DISEASE [None]
  - OPTIC NEURITIS [None]
  - INJECTION SITE PAIN [None]
  - ALOPECIA [None]
  - NAUSEA [None]
  - INFLUENZA LIKE ILLNESS [None]
  - CENTRAL NERVOUS SYSTEM LESION [None]
